FAERS Safety Report 6671387-4 (Version None)
Quarter: 2010Q2

REPORT INFORMATION
  Report Type: 
  Country: None (occurrence: None)
  Receive Date: 20100407
  Receipt Date: 20100331
  Transmission Date: 20101027
  Serious: Yes (Disabling)
  Sender: FDA-Public Use
  Company Number: B0631161A

PATIENT
  Sex: Male

DRUGS (6)
  1. COMBIVIR [Suspect]
     Indication: PROPHYLAXIS
     Route: 065
     Dates: start: 20090501
  2. METFORMIN [Concomitant]
  3. VALIUM [Concomitant]
  4. TRAMADOL [Concomitant]
  5. DIAMICRON [Concomitant]
  6. ACTOS [Concomitant]

REACTIONS (14)
  - AMNESIA [None]
  - ANXIETY [None]
  - BURNING SENSATION [None]
  - DEPRESSION [None]
  - DYSURIA [None]
  - FAECAL INCONTINENCE [None]
  - FATIGUE [None]
  - GAIT DISTURBANCE [None]
  - HYPOAESTHESIA [None]
  - MALAISE [None]
  - MULTIPLE SCLEROSIS [None]
  - MUSCLE SPASMS [None]
  - PYREXIA [None]
  - SPINAL CORD INJURY [None]
